FAERS Safety Report 23775615 (Version 2)
Quarter: 2024Q2

REPORT INFORMATION
  Report Type: Spontaneous
  Country: JP (occurrence: JP)
  Receive Date: 20240423
  Receipt Date: 20240522
  Transmission Date: 20240716
  Serious: Yes (Life-Threatening, Hospitalization)
  Sender: FDA-Public Use
  Company Number: JP-STRIDES ARCOLAB LIMITED-2024SP004645

PATIENT
  Age: 6 Decade
  Sex: Female

DRUGS (8)
  1. AMLODIPINE [Suspect]
     Active Substance: AMLODIPINE BESYLATE
     Indication: Product used for unknown indication
     Dosage: UNK
     Route: 048
  2. OLMESARTAN MEDOXOMIL [Suspect]
     Active Substance: OLMESARTAN MEDOXOMIL
     Indication: Product used for unknown indication
     Dosage: UNK
     Route: 048
  3. TELMISARTAN [Suspect]
     Active Substance: TELMISARTAN
     Indication: Product used for unknown indication
     Dosage: UNK
     Route: 048
  4. VILDAGLIPTIN [Suspect]
     Active Substance: VILDAGLIPTIN
     Indication: Product used for unknown indication
     Dosage: UNK
     Route: 048
  5. NIFEDIPINE [Suspect]
     Active Substance: NIFEDIPINE
     Indication: Product used for unknown indication
     Dosage: UNK
     Route: 048
  6. AZELNIDIPINE [Suspect]
     Active Substance: AZELNIDIPINE
     Indication: Product used for unknown indication
     Dosage: UNK
     Route: 048
  7. ESAXERENONE [Suspect]
     Active Substance: ESAXERENONE
     Indication: Product used for unknown indication
     Dosage: UNK
     Route: 048
  8. CALCIUM GLUCONATE [Concomitant]
     Active Substance: CALCIUM GLUCONATE
     Indication: Product used for unknown indication
     Dosage: 20 MILLILITER
     Route: 042

REACTIONS (9)
  - Compartment syndrome [Unknown]
  - Haemodynamic instability [Recovered/Resolved]
  - Nausea [Unknown]
  - Vomiting [Unknown]
  - Coma [Recovered/Resolved]
  - Oedema peripheral [Unknown]
  - Angioedema [Recovered/Resolved]
  - Hypotension [Not Recovered/Not Resolved]
  - Intentional overdose [Unknown]
